FAERS Safety Report 5205917-6 (Version None)
Quarter: 2006Q4

REPORT INFORMATION
  Report Type: 
  Country: None (occurrence: None)
  Receive Date: 20061026
  Receipt Date: 20060728
  Transmission Date: 20070319
  Serious: No
  Sender: FDA-Public Use
  Company Number: 2006093772

PATIENT
  Sex: Male
  Weight: 108.8633 kg

DRUGS (7)
  1. LYRICA [Suspect]
     Indication: NEUROPATHY PERIPHERAL
     Dosage: 150 MG (75 MG, 2 IN 1 D)
     Dates: start: 20051001
  2. NEURONTIN [Suspect]
     Indication: NEUROPATHY PERIPHERAL
     Dosage: 400 MG (400 MG, 1 IN 1 D)
  3. METHADONE HCL [Suspect]
     Indication: PAIN
     Dates: end: 20051001
  4. OMEPRAZOLE [Concomitant]
  5. CYMBALTA [Concomitant]
  6. MAXZIDE [Concomitant]
  7. LASIX [Concomitant]

REACTIONS (10)
  - BLOOD PRESSURE INCREASED [None]
  - DRUG INEFFECTIVE [None]
  - DRUG WITHDRAWAL SYNDROME [None]
  - HEART RATE INCREASED [None]
  - MUSCLE SPASMS [None]
  - NEUROPATHY [None]
  - OEDEMA PERIPHERAL [None]
  - STOMACH DISCOMFORT [None]
  - UNEVALUABLE EVENT [None]
  - WEIGHT INCREASED [None]
